FAERS Safety Report 7485492-6 (Version None)
Quarter: 2011Q2

REPORT INFORMATION
  Report Type: 
  Country: None (occurrence: None)
  Receive Date: 20110517
  Receipt Date: 20101222
  Transmission Date: 20111010
  Serious: Yes (Hospitalization, Other)
  Sender: FDA-Public Use
  Company Number: US-BAYER-2010-009343

PATIENT
  Age: 25 Year
  Sex: Female

DRUGS (1)
  1. MIRENA [Suspect]
     Indication: CONTRACEPTION
     Dosage: UNK
     Dates: start: 20101123, end: 20101212

REACTIONS (5)
  - RASH [None]
  - PELVIC INFLAMMATORY DISEASE [None]
  - DEVICE EXPULSION [None]
  - VAGINAL DISCHARGE [None]
  - ABDOMINAL PAIN LOWER [None]
